FAERS Safety Report 24200345 (Version 1)
Quarter: 2024Q3

REPORT INFORMATION
  Report Type: Spontaneous
  Country: US (occurrence: None)
  Receive Date: 20240809
  Receipt Date: 20240809
  Transmission Date: 20241016
  Serious: Yes (Hospitalization)
  Sender: Public
  Company Number: None

PATIENT
  Age: 57 Year
  Sex: Male
  Weight: 134 kg

DRUGS (6)
  1. TACROLIMUS [Suspect]
     Active Substance: TACROLIMUS
     Indication: Renal transplant
     Dosage: 1 MG DAILY ORAL ?
     Route: 048
     Dates: start: 20221102
  2. MYCOPHENOLIC ACID [Suspect]
     Active Substance: MYCOPHENOLIC ACID
     Indication: Renal transplant
     Dosage: 1000 MG TWICE A DAY ORAL
     Route: 048
     Dates: start: 20221102
  3. TACROLIMUS [Concomitant]
     Active Substance: TACROLIMUS
     Dates: start: 20221102
  4. Sulfameth/Trimeth400/80mg [Concomitant]
     Dates: start: 20221102
  5. PREDNISONE [Concomitant]
     Active Substance: PREDNISONE
     Dates: start: 20221102
  6. Mag-oxide 400 [Concomitant]
     Dates: start: 20221102

REACTIONS (2)
  - Hypersensitivity [None]
  - Urticaria [None]

NARRATIVE: CASE EVENT DATE: 20240806
